FAERS Safety Report 13572451 (Version 1)
Quarter: 2017Q2

REPORT INFORMATION
  Report Type: Spontaneous
  Country: US (occurrence: US)
  Receive Date: 20170523
  Receipt Date: 20170523
  Transmission Date: 20170830
  Serious: Yes (Hospitalization)
  Sender: FDA-Public Use
  Company Number: None

PATIENT
  Age: 37 Year
  Sex: Male
  Weight: 70 kg

DRUGS (1)
  1. AZITHROMYCIN ANHYDROUS. [Suspect]
     Active Substance: AZITHROMYCIN ANHYDROUS
     Indication: PNEUMONIA
     Route: 048
     Dates: start: 20170507, end: 20170511

REACTIONS (8)
  - Cholestasis [None]
  - Nausea [None]
  - Drug-induced liver injury [None]
  - Malaise [None]
  - Retching [None]
  - Chest pain [None]
  - Dyspnoea [None]
  - Cholelithiasis [None]

NARRATIVE: CASE EVENT DATE: 20170519
